FAERS Safety Report 6518796-1 (Version None)
Quarter: 2009Q4

REPORT INFORMATION
  Report Type: 
  Country: None (occurrence: None)
  Receive Date: 20091228
  Receipt Date: 20091215
  Transmission Date: 20100525
  Serious: No
  Sender: FDA-Public Use
  Company Number: US-JNJFOC-20091205155

PATIENT
  Sex: Male
  Weight: 82.56 kg

DRUGS (2)
  1. DURAGESIC-100 [Suspect]
     Indication: INTERVERTEBRAL DISC INJURY
     Route: 062
  2. TRAMADOL HCL [Concomitant]
     Indication: PAIN

REACTIONS (1)
  - WRONG TECHNIQUE IN DRUG USAGE PROCESS [None]
